FAERS Safety Report 7340682-8 (Version None)
Quarter: 2011Q1

REPORT INFORMATION
  Report Type: 
  Country: None (occurrence: None)
  Receive Date: 20110309
  Receipt Date: 20110303
  Transmission Date: 20110831
  Serious: Yes (Other)
  Sender: FDA-Public Use
  Company Number: AU-SANOFI-AVENTIS-2011SA010676

PATIENT
  Age: 68 Year
  Sex: Female

DRUGS (7)
  1. ASASANTIN [Concomitant]
  2. ARAVA [Suspect]
     Route: 048
     Dates: start: 20101027
  3. NEXIUM [Concomitant]
  4. SIMVASTATIN [Concomitant]
  5. PREDNISOLONE [Concomitant]
  6. ACTONEL WITH CALCIUM (COPACKAGED) [Concomitant]
     Dates: start: 20090316
  7. NATRILIX [Concomitant]

REACTIONS (2)
  - LESION EXCISION [None]
  - MALIGNANT MELANOMA [None]
